FAERS Safety Report 8253081-1 (Version None)
Quarter: 2012Q2

REPORT INFORMATION
  Report Type: 
  Country: None (occurrence: None)
  Receive Date: 20120402
  Receipt Date: 20120302
  Transmission Date: 20120825
  Serious: No
  Sender: FDA-Public Use
  Company Number: US-AMGEN-USASP2012011502

PATIENT
  Age: 57 Year
  Sex: Female

DRUGS (2)
  1. ENBREL [Suspect]
  2. ENBREL [Suspect]
     Indication: RHEUMATOID ARTHRITIS
     Dosage: 50 MG, QWK
     Dates: start: 20111108, end: 20120201

REACTIONS (8)
  - ASTHENIA [None]
  - DIZZINESS [None]
  - VISION BLURRED [None]
  - ARTHRALGIA [None]
  - WRIST SURGERY [None]
  - FATIGUE [None]
  - NAUSEA [None]
  - DYSPNOEA [None]
